FAERS Safety Report 20780517 (Version 1)
Quarter: 2022Q2

REPORT INFORMATION
  Report Type: Spontaneous
  Country: US (occurrence: None)
  Receive Date: 20220504
  Receipt Date: 20220504
  Transmission Date: 20220721
  Serious: Yes (Hospitalization)
  Sender: FDA-Public Use
  Company Number: US-Unichem Pharmaceuticals (USA) Inc-UCM202204-000411

PATIENT
  Weight: 90.1 kg

DRUGS (8)
  1. GUANFACINE [Suspect]
     Active Substance: GUANFACINE
     Indication: Overdose
     Dosage: FORTY FIVE TABLETS OF 2 MG
     Route: 048
  2. GUANFACINE [Suspect]
     Active Substance: GUANFACINE
     Indication: Impulse-control disorder
  3. LORATADINE [Suspect]
     Active Substance: LORATADINE
     Indication: Overdose
     Dosage: OVERDOSE
  4. MELATONIN [Suspect]
     Active Substance: MELATONIN
     Indication: Overdose
     Dosage: OVERDOSE
  5. CITALOPRAM [Concomitant]
     Active Substance: CITALOPRAM HYDROBROMIDE
     Indication: Depression
  6. CITALOPRAM [Concomitant]
     Active Substance: CITALOPRAM HYDROBROMIDE
     Indication: Anxiety
  7. BUPROPION [Concomitant]
     Active Substance: BUPROPION
     Indication: Depression
  8. BUPROPION [Concomitant]
     Active Substance: BUPROPION
     Indication: Anxiety

REACTIONS (14)
  - Diplopia [Recovering/Resolving]
  - Dysarthria [Recovering/Resolving]
  - Intentional overdose [Unknown]
  - Hypertension [Recovering/Resolving]
  - Dizziness [Recovering/Resolving]
  - Nausea [Recovering/Resolving]
  - Hyperhidrosis [Recovering/Resolving]
  - Hypotension [Recovering/Resolving]
  - Headache [Recovering/Resolving]
  - Syncope [Recovering/Resolving]
  - Lethargy [Recovering/Resolving]
  - Somnolence [Recovering/Resolving]
  - Somnolence [Recovering/Resolving]
  - Bradycardia [Recovering/Resolving]
